FAERS Safety Report 13289844 (Version 1)
Quarter: 2017Q1

REPORT INFORMATION
  Report Type: Spontaneous
  Country: US (occurrence: US)
  Receive Date: 20170302
  Receipt Date: 20170302
  Transmission Date: 20170428
  Serious: No
  Sender: FDA-Public Use
  Company Number: US-THE MEDICINES COMPANY-US-MDCO-17-00040

PATIENT
  Age: 61 Year
  Sex: Male

DRUGS (1)
  1. ORBACTIV [Suspect]
     Active Substance: ORITAVANCIN
     Indication: SKIN BACTERIAL INFECTION
     Dosage: NOT REPORTED
     Route: 041

REACTIONS (2)
  - Nausea [Unknown]
  - Headache [Unknown]
